FAERS Safety Report 25167001 (Version 1)
Quarter: 2025Q2

REPORT INFORMATION
  Report Type: Spontaneous
  Country: US (occurrence: US)
  Receive Date: 20250407
  Receipt Date: 20250407
  Transmission Date: 20250717
  Serious: Yes (Death)
  Sender: ROCHE
  Company Number: US-ROCHE-10000251975

PATIENT
  Age: 103 Year
  Sex: Female

DRUGS (6)
  1. ERIVEDGE [Suspect]
     Active Substance: VISMODEGIB
     Indication: Basal cell carcinoma
     Route: 048
  2. FUROSEMIDE  TAB 80MG [Concomitant]
  3. AMLODIPINE B TAB 5MG [Concomitant]
  4. BENAZEPRIL H TAB 20MG [Concomitant]
  5. GABAPENTIN CAP 100MG [Concomitant]
  6. PANTOPRAZOLE TBE 20MG [Concomitant]

REACTIONS (1)
  - Death [Fatal]

NARRATIVE: CASE EVENT DATE: 20250401
